FAERS Safety Report 5370565-4 (Version None)
Quarter: 2007Q2

REPORT INFORMATION
  Report Type: 
  Country: None (occurrence: None)
  Receive Date: 20070626
  Receipt Date: 20070611
  Transmission Date: 20071010
  Serious: Yes (Other)
  Sender: FDA-Public Use
  Company Number: FR-ELI_LILLY_AND_COMPANY-FR200706002809

PATIENT
  Age: 65 Year
  Sex: Female

DRUGS (1)
  1. EVISTA [Suspect]

REACTIONS (3)
  - CERVICAL STRICTURE [None]
  - ENDOMETRIAL CANCER [None]
  - ENDOMETRIAL HYPERPLASIA [None]
